FAERS Safety Report 19832918 (Version 1)
Quarter: 2021Q3

REPORT INFORMATION
  Report Type: Other
  Country: US (occurrence: US)
  Receive Date: 20210915
  Receipt Date: 20210915
  Transmission Date: 20211014
  Serious: Yes (Hospitalization)
  Sender: FDA-Public Use
  Company Number: US-NATCO PHARMA LIMITED-2118384

PATIENT
  Age: 87 Year
  Sex: Female

DRUGS (1)
  1. ANASTROZOLE TABLETS, 1MG [Suspect]
     Active Substance: ANASTROZOLE
     Indication: BREAST CANCER

REACTIONS (3)
  - Aortic thrombosis [None]
  - Deep vein thrombosis [None]
  - Pulmonary embolism [None]
